FAERS Safety Report 4795710-0 (Version None)
Quarter: 2005Q3

REPORT INFORMATION
  Report Type: 
  Country: None (occurrence: None)
  Receive Date: 20050916
  Receipt Date: 20050628
  Transmission Date: 20060218
  Serious: Yes (Other)
  Sender: FDA-Public Use
  Company Number: US-JNJFOC-20050601682

PATIENT
  Age: 53 Year
  Sex: Male

DRUGS (1)
  1. TOPAMAX [Suspect]
     Indication: CLUSTER HEADACHE

REACTIONS (2)
  - DEEP VEIN THROMBOSIS [None]
  - PULMONARY EMBOLISM [None]
